FAERS Safety Report 7334519-0 (Version None)
Quarter: 2011Q1

REPORT INFORMATION
  Report Type: 
  Country: None (occurrence: None)
  Receive Date: 20110307
  Receipt Date: 20110225
  Transmission Date: 20110831
  Serious: Yes (Hospitalization, Other)
  Sender: FDA-Public Use
  Company Number: US-US-EMD SERONO, INC.-7005533

PATIENT
  Sex: Female
  Weight: 64 kg

DRUGS (4)
  1. AGGRENOX [Suspect]
     Indication: CAROTID ARTERY OCCLUSION
  2. PLAVIX [Suspect]
     Indication: CAROTID ARTERY OCCLUSION
  3. ASPIRIN [Suspect]
     Indication: CAROTID ARTERY OCCLUSION
  4. REBIF [Suspect]
     Indication: MULTIPLE SCLEROSIS
     Route: 058
     Dates: start: 20050824

REACTIONS (3)
  - CAROTID ARTERY OCCLUSION [None]
  - HEAD INJURY [None]
  - SUBDURAL HAEMATOMA [None]
